FAERS Safety Report 11764453 (Version 1)
Quarter: 2015Q4

REPORT INFORMATION
  Report Type: Spontaneous
  Country: US (occurrence: US)
  Receive Date: 20151120
  Receipt Date: 20151120
  Transmission Date: 20160304
  Serious: No
  Sender: FDA-Public Use
  Company Number: US-ELI_LILLY_AND_COMPANY-US201305007710

PATIENT
  Sex: Female

DRUGS (6)
  1. CHONDROITIN [Concomitant]
     Active Substance: CHONDROITIN
  2. VITAMIN C [Concomitant]
     Active Substance: ASCORBIC ACID
  3. B COMPLEX                          /06817001/ [Concomitant]
  4. GLUCOSAMINE [Concomitant]
     Active Substance: GLUCOSAMINE
  5. FISH OIL [Concomitant]
     Active Substance: FISH OIL
  6. FORTEO [Suspect]
     Active Substance: TERIPARATIDE
     Dosage: UNK, UNKNOWN
     Dates: start: 20121211

REACTIONS (2)
  - Sinus disorder [Unknown]
  - Medication error [Unknown]
